FAERS Safety Report 7387526-6 (Version None)
Quarter: 2011Q1

REPORT INFORMATION
  Report Type: 
  Country: None (occurrence: None)
  Receive Date: 20110331
  Receipt Date: 20110330
  Transmission Date: 20110831
  Serious: Yes (Hospitalization)
  Sender: FDA-Public Use
  Company Number: JP-ABBOTT-11P-087-0699853-00

PATIENT
  Sex: Female
  Weight: 38 kg

DRUGS (8)
  1. TEPRENONE [Concomitant]
     Indication: PROPHYLAXIS AGAINST GASTROINTESTINAL ULCER
     Route: 048
     Dates: start: 20090521
  2. PURIFIRD SODIUM HYALURONATE [Concomitant]
     Indication: RHEUMATOID ARTHRITIS
     Route: 014
     Dates: start: 20100409
  3. FOLIC ACID [Concomitant]
     Indication: PROPHYLAXIS
     Dosage: 5 MG/W
     Route: 048
     Dates: start: 20090326, end: 20091203
  4. HUMIRA [Suspect]
     Indication: RHEUMATOID ARTHRITIS
     Dates: start: 20090827, end: 20101203
  5. METHOTREXATE [Suspect]
     Indication: RHEUMATOID ARTHRITIS
     Route: 048
     Dates: start: 20090326, end: 20091119
  6. METHOTREXATE [Suspect]
     Route: 048
     Dates: start: 20091119, end: 20091203
  7. CELECOXIB [Concomitant]
     Indication: RHEUMATOID ARTHRITIS
     Route: 048
     Dates: start: 20090521
  8. FOLIC ACID [Concomitant]
     Indication: ADVERSE DRUG REACTION

REACTIONS (4)
  - NASOPHARYNGITIS [None]
  - CELL MARKER INCREASED [None]
  - PNEUMONIA [None]
  - PYREXIA [None]
